FAERS Safety Report 5284485-7 (Version None)
Quarter: 2007Q1

REPORT INFORMATION
  Report Type: 
  Country: None (occurrence: None)
  Receive Date: 20070330
  Receipt Date: 20070330
  Transmission Date: 20070707
  Serious: Yes (Disabling)
  Sender: FDA-Public Use
  Company Number: None

PATIENT
  Age: 52 Year
  Sex: Male
  Weight: 89.3586 kg

DRUGS (1)
  1. DEPAKOTE ER [Suspect]
     Indication: AFFECTIVE DISORDER
     Dosage: 1500MG TWICE A DAY PO
     Route: 048
     Dates: start: 20060501, end: 20070329

REACTIONS (3)
  - AMMONIA INCREASED [None]
  - DELIRIUM [None]
  - DRUG LEVEL INCREASED [None]
